FAERS Safety Report 5227347-3 (Version None)
Quarter: 2007Q1

REPORT INFORMATION
  Report Type: 
  Country: None (occurrence: None)
  Receive Date: 20070202
  Receipt Date: 20070126
  Transmission Date: 20070707
  Serious: Yes (Other)
  Sender: FDA-Public Use
  Company Number: JP-MERCK-0701USA04977

PATIENT
  Age: 64 Year
  Sex: Male

DRUGS (1)
  1. PEPCID RPD [Suspect]
     Indication: GASTRIC ULCER
     Route: 048

REACTIONS (2)
  - MUSCLE SPASMS [None]
  - VENTRICULAR FIBRILLATION [None]
